FAERS Safety Report 10526425 (Version 2)
Quarter: 2014Q4

REPORT INFORMATION
  Report Type: Report from Study
  Country: CA (occurrence: CA)
  Receive Date: 20141020
  Receipt Date: 20141107
  Transmission Date: 20150528
  Serious: Yes (Hospitalization, Other)
  Sender: FDA-Public Use
  Company Number: CA-AMGEN-CANSL2014079677

PATIENT
  Age: 89 Year
  Sex: Female

DRUGS (2)
  1. PROLIA [Suspect]
     Active Substance: DENOSUMAB
     Indication: OSTEOPOROSIS POSTMENOPAUSAL
     Dosage: 60 MG, Q6MO
     Route: 058
     Dates: start: 20130524
  2. TETANUS VACCIN [Concomitant]
     Active Substance: CLOSTRIDIUM TETANI TOXOID ANTIGEN (FORMALDEHYDE INACTIVATED)

REACTIONS (9)
  - Dyspnoea [Unknown]
  - Fall [Unknown]
  - Periorbital contusion [Unknown]
  - Eye injury [Unknown]
  - Muscle swelling [Unknown]
  - Contusion [Unknown]
  - Pulmonary oedema [Unknown]
  - Rib fracture [Unknown]
  - Fluid retention [Unknown]

NARRATIVE: CASE EVENT DATE: 20141024
